FAERS Safety Report 9103562 (Version 1)
Quarter: 2013Q1

REPORT INFORMATION
  Report Type: Spontaneous
  Country: US (occurrence: US)
  Receive Date: 20130219
  Receipt Date: 20130219
  Transmission Date: 20140127
  Serious: No
  Sender: FDA-Public Use
  Company Number: US-PFIZER INC-2013061566

PATIENT
  Age: 85 Year
  Sex: Male
  Weight: 92.97 kg

DRUGS (4)
  1. LIPITOR [Suspect]
     Indication: BLOOD CHOLESTEROL ABNORMAL
     Dosage: UNK, 1X/DAY
  2. INSTAFLEX [Suspect]
     Indication: ARTHRITIS
     Dosage: 1 DF, 1X/DAY
     Dates: start: 2013
  3. INSTAFLEX [Suspect]
     Dosage: 2 DF, 1X/DAY
     Dates: end: 2013
  4. BABY ASPIRIN [Suspect]
     Indication: HYPERTENSION
     Dosage: 81 MG, 1X/DAY

REACTIONS (1)
  - Dyspnoea [Recovering/Resolving]
